FAERS Safety Report 14418117 (Version 2)
Quarter: 2018Q2

REPORT INFORMATION
  Report Type: Not Available
  Country: US (occurrence: US)
  Receive Date: 20180122
  Receipt Date: 20180420
  Transmission Date: 20180711
  Serious: No
  Sender: FDA-Public Use
  Company Number: US-NEUROCRINE BIOSCIENCES INC.-2017NBI01802

PATIENT
  Age: 70 Year
  Sex: Female

DRUGS (4)
  1. INGREZZA [Suspect]
     Active Substance: VALBENAZINE
     Dates: start: 201710, end: 2017
  2. INGREZZA [Suspect]
     Active Substance: VALBENAZINE
     Indication: TONGUE MOVEMENT DISTURBANCE
     Route: 048
     Dates: start: 20171103, end: 20171109
  3. INGREZZA [Suspect]
     Active Substance: VALBENAZINE
     Indication: DYSGEUSIA
     Route: 048
     Dates: start: 20171110, end: 20171117
  4. INGREZZA [Suspect]
     Active Substance: VALBENAZINE
     Dates: start: 2017, end: 2017

REACTIONS (4)
  - Pruritus generalised [Recovered/Resolved]
  - Swelling [Recovered/Resolved]
  - Arthralgia [Unknown]
  - Drug hypersensitivity [Recovered/Resolved]

NARRATIVE: CASE EVENT DATE: 201711
